FAERS Safety Report 5124613-7 (Version None)
Quarter: 2006Q4

REPORT INFORMATION
  Report Type: 
  Country: None (occurrence: None)
  Receive Date: 20061011
  Receipt Date: 20060902
  Transmission Date: 20070319
  Serious: Yes (Hospitalization)
  Sender: FDA-Public Use
  Company Number: US-BAYER-200613777BCC

PATIENT
  Sex: Female
  Weight: 73 kg

DRUGS (1)
  1. ASPIRIN [Suspect]
     Indication: PAIN
     Dosage: AS USED: 650 MG  UNIT DOSE: 325 MG
     Route: 048

REACTIONS (5)
  - BLEEDING TIME ABNORMAL [None]
  - FALL [None]
  - LOSS OF CONSCIOUSNESS [None]
  - PROTEIN C DEFICIENCY [None]
  - THROMBOSIS [None]
